FAERS Safety Report 6283194-5 (Version None)
Quarter: 2009Q3

REPORT INFORMATION
  Report Type: 
  Country: None (occurrence: None)
  Receive Date: 20090724
  Receipt Date: 20090716
  Transmission Date: 20100115
  Serious: Yes (Other)
  Sender: FDA-Public Use
  Company Number: B0585493A

PATIENT
  Sex: Female

DRUGS (2)
  1. REQUIP XL [Suspect]
     Indication: PARKINSON'S DISEASE
     Dosage: 12MG PER DAY
     Route: 048
     Dates: start: 20081001
  2. SINEMET [Concomitant]
     Route: 065

REACTIONS (1)
  - PANCREATIC CARCINOMA [None]
